FAERS Safety Report 6001311-9 (Version None)
Quarter: 2008Q4

REPORT INFORMATION
  Report Type: 
  Country: None (occurrence: None)
  Receive Date: 20081215
  Receipt Date: 20081211
  Transmission Date: 20090506
  Serious: Yes (Other)
  Sender: FDA-Public Use
  Company Number: PHEH2008US08770

PATIENT
  Sex: Female
  Weight: 136.96 kg

DRUGS (2)
  1. GLEEVEC [Suspect]
     Indication: CHRONIC MYELOID LEUKAEMIA
     Dosage: 400 MG, QD
     Route: 048
     Dates: start: 20020528
  2. TENORMIN [Concomitant]
     Indication: ESSENTIAL HYPERTENSION
     Dosage: UNK

REACTIONS (4)
  - BLOOD PRESSURE ABNORMAL [None]
  - FATIGUE [None]
  - HAEMATURIA [None]
  - OEDEMA PERIPHERAL [None]
